FAERS Safety Report 5390424-0 (Version None)
Quarter: 2007Q3

REPORT INFORMATION
  Report Type: 
  Country: None (occurrence: None)
  Receive Date: 20070718
  Receipt Date: 20070215
  Transmission Date: 20080115
  Serious: No
  Sender: FDA-Public Use
  Company Number: US-KINGPHARMUSA00001-K200700174

PATIENT

DRUGS (2)
  1. LEVOXYL [Suspect]
     Indication: HYPOTHYROIDISM
     Dosage: UNK, QD
     Route: 048
     Dates: start: 20050101
  2. ROBITUSSIN  /00048001/ [Suspect]
     Indication: INFLUENZA LIKE ILLNESS
     Route: 048
     Dates: start: 20070201, end: 20070201

REACTIONS (2)
  - INFLUENZA LIKE ILLNESS [None]
  - PALPITATIONS [None]
